FAERS Safety Report 18761583 (Version 1)
Quarter: 2021Q1

REPORT INFORMATION
  Report Type: Spontaneous
  Country: CA (occurrence: CA)
  Receive Date: 20210120
  Receipt Date: 20210120
  Transmission Date: 20210419
  Serious: Yes (Hospitalization)
  Sender: FDA-Public Use
  Company Number: CA-ACCORD-214585

PATIENT
  Age: 55 Year
  Sex: Male

DRUGS (9)
  1. NETUPITANT/PALONOSETRON [Concomitant]
     Active Substance: NETUPITANT\PALONOSETRON HYDROCHLORIDE
  2. ZOFRAN [Concomitant]
     Active Substance: ONDANSETRON HYDROCHLORIDE
  3. FLUOROURACIL. [Suspect]
     Active Substance: FLUOROURACIL
     Indication: NEOPLASM MALIGNANT
     Dosage: 1 EVERY 2 WEEKS
     Route: 042
  4. PANTOLOC [Concomitant]
     Active Substance: PANTOPRAZOLE SODIUM
  5. DECADRON [Concomitant]
     Active Substance: DEXAMETHASONE
  6. LOMOTIL [Concomitant]
     Active Substance: ATROPINE SULFATE\DIPHENOXYLATE HYDROCHLORIDE
  7. OLANZAPINE. [Concomitant]
     Active Substance: OLANZAPINE
  8. OXALIPLATIN. [Suspect]
     Active Substance: OXALIPLATIN
     Indication: NEOPLASM MALIGNANT
     Dosage: 1 EVERY 2 WEEKS
     Route: 042
  9. WARFARIN [Concomitant]
     Active Substance: WARFARIN

REACTIONS (2)
  - Diarrhoea [Recovering/Resolving]
  - Dehydration [Recovering/Resolving]
